FAERS Safety Report 8766627 (Version 2)
Quarter: 2012Q4

REPORT INFORMATION
  Report Type: 
  Country: DK (occurrence: HU)
  Receive Date: 20120904
  Receipt Date: 20120917
  Transmission Date: 20130627
  Serious: Yes (Hospitalization, Other)
  Sender: FDA-Public Use
  Company Number: HU-FRI-1000038249

PATIENT
  Age: 53 Year
  Sex: Female

DRUGS (10)
  1. ESCITALOPRAM [Suspect]
     Dates: start: 20091028, end: 20120314
  2. LITHIUM CARBONATE [Suspect]
     Dosage: 1000 mg
     Dates: start: 200711
  3. QUETIAPINE [Suspect]
     Dosage: 200 mg
     Dates: start: 20071228
  4. AMILORIDE [Suspect]
  5. HYDROCHLOROTHIAZIDE [Suspect]
  6. ACETYLSALICYLIC ACID [Suspect]
  7. LEVOTHYROXIN [Suspect]
  8. CLONAZEPAM [Suspect]
     Dosage: 0.5-0.5-3 mg
  9. CINOLAZEPAM [Suspect]
  10. KETOCONAZOLE [Suspect]
     Indication: INTERTRIGO
     Dates: end: 20120216

REACTIONS (6)
  - Sinus arrest [Recovered/Resolved]
  - Sinus bradycardia [Recovered/Resolved]
  - Atrial fibrillation [Recovered/Resolved]
  - Atrial tachycardia [Recovered/Resolved]
  - Palpitations [Recovered/Resolved]
  - Fatigue [Recovered/Resolved]
